FAERS Safety Report 17811296 (Version 2)
Quarter: 2021Q4

REPORT INFORMATION
  Report Type: Spontaneous
  Country: US (occurrence: US)
  Receive Date: 20200521
  Receipt Date: 20211019
  Transmission Date: 20220303
  Serious: Yes (Hospitalization, Other)
  Sender: FDA-Public Use
  Company Number: US-PFIZER INC-2019527037

PATIENT
  Age: 60 Year
  Sex: Female
  Weight: 115.19 kg

DRUGS (4)
  1. XELJANZ [Suspect]
     Active Substance: TOFACITINIB CITRATE
     Indication: Rheumatoid arthritis
     Dosage: 5 MG, 2X/DAY [DOSE AND ROUTE PRESCRIBED: 1 TABLET ORAL; FREQUENCY: TWICE A DAY]
     Route: 048
  2. METOPROLOL [Concomitant]
     Active Substance: METOPROLOL
  3. OXYCODONE [Concomitant]
     Active Substance: OXYCODONE
  4. VITAMIN D2 [Concomitant]
     Active Substance: ERGOCALCIFEROL

REACTIONS (4)
  - Joint dislocation [Unknown]
  - Condition aggravated [Unknown]
  - Therapeutic product effect incomplete [Unknown]
  - COVID-19 [Not Recovered/Not Resolved]

NARRATIVE: CASE EVENT DATE: 20200401
